FAERS Safety Report 21845766 (Version 1)
Quarter: 2023Q1

REPORT INFORMATION
  Report Type: Other
  Country: CN (occurrence: None)
  Receive Date: 20230111
  Receipt Date: 20230111
  Transmission Date: 20230417
  Serious: Yes (Death)
  Sender: FDA-Public Use
  Company Number: CN-ROCHE-3260965

PATIENT
  Age: 48 Year

DRUGS (2)
  1. ACTEMRA [Suspect]
     Active Substance: TOCILIZUMAB
     Indication: Product used for unknown indication
     Route: 041
     Dates: start: 20220624
  2. METHOTREXATE [Concomitant]
     Active Substance: METHOTREXATE
     Dates: start: 20220624

REACTIONS (1)
  - Death [Fatal]

NARRATIVE: CASE EVENT DATE: 20230105
